FAERS Safety Report 20350994 (Version 1)
Quarter: 2022Q1

REPORT INFORMATION
  Report Type: Spontaneous
  Country: RU (occurrence: RU)
  Receive Date: 20220119
  Receipt Date: 20220119
  Transmission Date: 20220423
  Serious: Yes (Death, Hospitalization)
  Sender: FDA-Public Use
  Company Number: RU-ABBVIE-22K-251-4238978-00

PATIENT
  Age: 70 Year
  Sex: Female

DRUGS (8)
  1. VENETOCLAX [Suspect]
     Active Substance: VENETOCLAX
     Indication: Acute myeloid leukaemia
     Dosage: NOT REPORTED
     Route: 048
     Dates: start: 20210831, end: 2021
  2. VENETOCLAX [Suspect]
     Active Substance: VENETOCLAX
     Dosage: NOT REPORTED
     Route: 048
     Dates: start: 20211005, end: 2021
  3. VENETOCLAX [Suspect]
     Active Substance: VENETOCLAX
     Dosage: NOT REPORTED
     Route: 048
     Dates: start: 20211103, end: 202111
  4. VENETOCLAX [Suspect]
     Active Substance: VENETOCLAX
     Dosage: NOT REPORTED
     Route: 048
     Dates: start: 20211116, end: 2021
  5. AZACITIDINE [Concomitant]
     Active Substance: AZACITIDINE
     Indication: Acute myeloid leukaemia
     Dosage: NOT REPORTED
     Dates: start: 20210831, end: 2021
  6. AZACITIDINE [Concomitant]
     Active Substance: AZACITIDINE
     Dosage: NOT REPORTED
     Dates: start: 20211005, end: 2021
  7. AZACITIDINE [Concomitant]
     Active Substance: AZACITIDINE
     Dosage: NOT REPORTED
     Dates: start: 20211103, end: 202111
  8. AZACITIDINE [Concomitant]
     Active Substance: AZACITIDINE
     Dosage: NOT REPORTED
     Dates: start: 20211116, end: 2021

REACTIONS (8)
  - Multiple organ dysfunction syndrome [Fatal]
  - Electrolyte imbalance [Fatal]
  - Cardiac failure [Fatal]
  - Respiratory failure [Fatal]
  - Renal failure [Fatal]
  - Oedema [Fatal]
  - Asthenia [Fatal]
  - Extrasystoles [Fatal]

NARRATIVE: CASE EVENT DATE: 20210101
